FAERS Safety Report 24186142 (Version 1)
Quarter: 2024Q3

REPORT INFORMATION
  Report Type: Spontaneous
  Country: CA (occurrence: CA)
  Receive Date: 20240808
  Receipt Date: 20240808
  Transmission Date: 20241017
  Serious: Yes (Hospitalization)
  Sender: STRIDES
  Company Number: CA-STRIDES ARCOLAB LIMITED-2024SP009861

PATIENT
  Age: 32 Year
  Sex: Male

DRUGS (4)
  1. CABERGOLINE [Suspect]
     Active Substance: CABERGOLINE
     Indication: Hyperadrenocorticism
     Dosage: 0.5 MILLIGRAM, 2 TIMES A WEEK
     Route: 065
  2. DEXAMETHASONE [Concomitant]
     Active Substance: DEXAMETHASONE
     Indication: Dexamethasone suppression test
     Dosage: 4 MILLIGRAM
     Route: 042
  3. DESMOPRESSIN [Concomitant]
     Active Substance: DESMOPRESSIN
     Indication: Hyperadrenocorticism
     Dosage: UNK
     Route: 048
  4. DESMOPRESSIN [Concomitant]
     Active Substance: DESMOPRESSIN
     Indication: ACTH stimulation test
     Dosage: 10 MICROGRAM (STIMULATION TEST)
     Route: 042

REACTIONS (2)
  - Adrenal insufficiency [Recovered/Resolved]
  - Off label use [Unknown]
